FAERS Safety Report 7341896-3 (Version None)
Quarter: 2011Q1

REPORT INFORMATION
  Report Type: 
  Country: None (occurrence: None)
  Receive Date: 20110309
  Receipt Date: 20110304
  Transmission Date: 20110831
  Serious: Yes (Other)
  Sender: FDA-Public Use
  Company Number: JP-PFIZER INC-2011038841

PATIENT
  Age: 69 Year
  Sex: Male

DRUGS (10)
  1. GLIMICRON [Concomitant]
  2. GASMOTIN [Concomitant]
  3. MUCOSTA [Concomitant]
  4. ACTOS [Concomitant]
  5. MICARDIS [Concomitant]
  6. LOXONIN [Concomitant]
  7. LYRICA [Suspect]
     Dosage: 200 MG, UNK
     Dates: start: 20110217
  8. LYRICA [Suspect]
     Indication: NEUROPATHY PERIPHERAL
     Dosage: 100 MG/DAY
     Route: 048
     Dates: start: 20110214
  9. MEXILETINE HYDROCHLORIDE [Concomitant]
  10. AMLODIPINE [Concomitant]

REACTIONS (1)
  - DIZZINESS [None]
